FAERS Safety Report 6174604-2 (Version None)
Quarter: 2009Q2

REPORT INFORMATION
  Report Type: 
  Country: None (occurrence: None)
  Receive Date: 20090430
  Receipt Date: 20080814
  Transmission Date: 20091009
  Serious: No
  Sender: FDA-Public Use
  Company Number: US-ASTRAZENECA-2008UW16619

PATIENT
  Age: 84 Year
  Sex: Female
  Weight: 59 kg

DRUGS (3)
  1. NEXIUM [Suspect]
     Indication: GASTROOESOPHAGEAL REFLUX DISEASE
     Route: 048
  2. TAMOXIFEN CITRATE [Suspect]
     Route: 048
  3. EFFEXOR [Concomitant]

REACTIONS (2)
  - ILL-DEFINED DISORDER [None]
  - PAIN [None]
